FAERS Safety Report 11591863 (Version 1)
Quarter: 2015Q4

REPORT INFORMATION
  Report Type: Spontaneous
  Country: US (occurrence: US)
  Receive Date: 20151005
  Receipt Date: 20151005
  Transmission Date: 20160304
  Serious: No
  Sender: FDA-Public Use
  Company Number: US-009507513-1509USA013385

PATIENT
  Age: 14 Year
  Sex: Male

DRUGS (3)
  1. FLUOCINOLONE ACETONIDE. [Concomitant]
     Active Substance: FLUOCINOLONE ACETONIDE
     Indication: ALOPECIA AREATA
     Dosage: UNK, FORMULATION SOLUTION
  2. TRIAMCINOLONE ACETONIDE. [Concomitant]
     Active Substance: TRIAMCINOLONE ACETONIDE
     Dosage: UNK, STRENGTH 10 MG/ML
  3. DIPROLENE [Suspect]
     Active Substance: BETAMETHASONE DIPROPIONATE
     Indication: ALOPECIA AREATA
     Dosage: UNK

REACTIONS (1)
  - Drug ineffective [Unknown]
